FAERS Safety Report 14955642 (Version 2)
Quarter: 2018Q2

REPORT INFORMATION
  Report Type: Report from Study
  Country: DE (occurrence: DE)
  Receive Date: 20180531
  Receipt Date: 20180621
  Transmission Date: 20180711
  Serious: Yes (Other)
  Sender: FDA-Public Use
  Company Number: DE-AMGEN-DEUNI2018072702

PATIENT
  Sex: Male
  Weight: 100 kg

DRUGS (13)
  1. PREGABALIN. [Concomitant]
     Active Substance: PREGABALIN
     Indication: TYPE 2 DIABETES MELLITUS
     Dosage: 150 MG, 3 UNK
     Dates: start: 20180307
  2. DEXAMETHASONE. [Suspect]
     Active Substance: DEXAMETHASONE
     Indication: PLASMA CELL MYELOMA
     Dosage: 10 MG, UNK
     Route: 065
     Dates: start: 20180307, end: 20180503
  3. IRBESARTAN ACTAVIS [Concomitant]
     Active Substance: IRBESARTAN
     Indication: HYPERTONIA
     Dosage: 300 MG, 1 UNK
     Dates: start: 20180307
  4. TORASEMID RATIOPHARM [Concomitant]
     Indication: HYPERTONIA
     Dosage: 10 MG, QD
     Dates: start: 20180307
  5. CARFILZOMIB [Suspect]
     Active Substance: CARFILZOMIB
     Indication: PLASMA CELL MYELOMA
     Dosage: 20 MG/M2, UNK
     Route: 042
     Dates: start: 20180307, end: 20180308
  6. CARFILZOMIB [Suspect]
     Active Substance: CARFILZOMIB
     Dosage: 56 MG/M2, UNK
     Route: 042
     Dates: start: 20180314, end: 20180503
  7. ZOLEDRONATE [Concomitant]
     Active Substance: ZOLEDRONIC ACID
     Indication: PROPHYLAXIS
     Dosage: 4 MG, QMO
     Dates: start: 20180219
  8. LEVEMIR [Concomitant]
     Active Substance: INSULIN DETEMIR
     Indication: TYPE 2 DIABETES MELLITUS
     Dosage: 14 IU, 1 UNK
     Dates: start: 20180307
  9. METFORMIN [Concomitant]
     Active Substance: METFORMIN HYDROCHLORIDE
     Indication: TYPE 2 DIABETES MELLITUS
     Dosage: 500 MG, BID
     Dates: start: 20180307
  10. ACTRAPID [Concomitant]
     Active Substance: INSULIN HUMAN
     Indication: TYPE 2 DIABETES MELLITUS
     Dosage: 12 IU, AS NECESSARY
     Dates: start: 20180307
  11. ACICLOVIR RATIOPHARM [Concomitant]
     Indication: PROPHYLAXIS
     Dosage: 200 MG, 3 UNK
     Dates: start: 20180307, end: 20180506
  12. COTRIM E RATIOPHARM [Concomitant]
     Indication: PROPHYLAXIS
     Dosage: 960 MG, EVERY OTHER DAY
     Dates: start: 20180307, end: 20180506
  13. FOLSAEURE [Concomitant]
     Active Substance: FOLIC ACID
     Indication: PROPHYLAXIS
     Dosage: 5 MG, EVERY OTHER DAY
     Dates: start: 20180307, end: 20180506

REACTIONS (1)
  - Autoimmune haemolytic anaemia [Not Recovered/Not Resolved]

NARRATIVE: CASE EVENT DATE: 20180417
